FAERS Safety Report 5058065-2 (Version None)
Quarter: 2006Q3

REPORT INFORMATION
  Report Type: 
  Country: None (occurrence: None)
  Receive Date: 20060721
  Receipt Date: 20060622
  Transmission Date: 20061208
  Serious: Yes (Other)
  Sender: FDA-Public Use
  Company Number: DE-ROCHE-452964

PATIENT
  Age: 71 Year
  Sex: Female
  Weight: 85 kg

DRUGS (4)
  1. KEVATRIL [Suspect]
     Route: 042
     Dates: start: 20051219, end: 20051219
  2. FLUOROURACIL [Concomitant]
     Route: 042
     Dates: start: 20051219, end: 20051219
  3. CYCLOPHOSPHAMIDE [Concomitant]
     Route: 042
     Dates: start: 20051219, end: 20051219
  4. EPIRUBICIN [Concomitant]
     Route: 042
     Dates: start: 20051219, end: 20051219

REACTIONS (2)
  - THROMBOPHLEBITIS [None]
  - THROMBOSIS [None]
